FAERS Safety Report 4558030-5 (Version None)
Quarter: 2005Q1

REPORT INFORMATION
  Report Type: 
  Country: None (occurrence: None)
  Receive Date: 20050121
  Receipt Date: 20040607
  Transmission Date: 20050727
  Serious: No
  Sender: FDA-Public Use
  Company Number: US-BRISTOL-MYERS SQUIBB COMPANY-12607446

PATIENT
  Age: 46 Year
  Sex: Male
  Weight: 113 kg

DRUGS (4)
  1. SERZONE [Suspect]
     Indication: ANXIETY
     Dosage: 100MG TABLETS CUT IN HALF
     Route: 048
  2. SORBITOL [Concomitant]
  3. SINGULAIR [Concomitant]
  4. MULTI-VITAMIN [Concomitant]

REACTIONS (8)
  - ANXIETY [None]
  - DIZZINESS [None]
  - DYSPNOEA [None]
  - FEAR [None]
  - HEADACHE [None]
  - HYPERHIDROSIS [None]
  - LAZINESS [None]
  - VISION BLURRED [None]
